FAERS Safety Report 16266318 (Version 1)
Quarter: 2019Q2

REPORT INFORMATION
  Report Type: Report from Study
  Country: US (occurrence: US)
  Receive Date: 20190502
  Receipt Date: 20190502
  Transmission Date: 20190711
  Serious: Yes (Other)
  Sender: FDA-Public Use
  Company Number: US-ACTELION-A-NJ2019-189944

PATIENT
  Sex: Female
  Weight: 83.45 kg

DRUGS (4)
  1. UPTRAVI [Suspect]
     Active Substance: SELEXIPAG
     Indication: PULMONARY ARTERIAL HYPERTENSION
     Dosage: 1600 MCG, BID
     Route: 048
     Dates: end: 201904
  2. LETAIRIS [Concomitant]
     Active Substance: AMBRISENTAN
  3. AMLODIPINE [Concomitant]
     Active Substance: AMLODIPINE BESYLATE
  4. ADEMPAS [Concomitant]
     Active Substance: RIOCIGUAT

REACTIONS (2)
  - Peripheral swelling [Unknown]
  - Pulmonary oedema [Unknown]
